FAERS Safety Report 8836895 (Version 1)
Quarter: 2012Q4

REPORT INFORMATION
  Report Type: 
  Country: IN (occurrence: IN)
  Receive Date: 20121012
  Receipt Date: 20121012
  Transmission Date: 20130627
  Serious: Yes (Hospitalization)
  Sender: FDA-Public Use
  Company Number: IN-AMGEN-INDSP2012064586

PATIENT
  Age: 75 Year
  Sex: Female
  Weight: 65 kg

DRUGS (6)
  1. NEUPOGEN [Suspect]
     Indication: NEUTROPENIA
     Dosage: 300 mug, UNK
     Route: 058
     Dates: start: 20120921, end: 20120924
  2. NEUPOGEN [Suspect]
     Indication: CHEMOTHERAPY
  3. FLUCONAZOLE [Concomitant]
     Indication: BREAST CANCER
     Dosage: 100 mg, qd
     Route: 042
     Dates: start: 20120922
  4. CEFOPERAZONE W/SULBACTAM [Concomitant]
     Route: 042
  5. CYCLOPHOSPHAMIDE [Concomitant]
     Indication: BREAST CANCER METASTATIC
  6. DOXORUBICIN [Concomitant]
     Indication: BREAST CANCER METASTATIC
     Dosage: 300 mug, qd

REACTIONS (1)
  - White blood cell count decreased [Unknown]
